FAERS Safety Report 9235243 (Version 3)
Quarter: 2013Q3

REPORT INFORMATION
  Report Type: Report from Study
  Country: US (occurrence: US)
  Receive Date: 20130417
  Receipt Date: 20130911
  Transmission Date: 20140515
  Serious: Yes (Hospitalization)
  Sender: FDA-Public Use
  Company Number: US-PFIZER INC-2013064068

PATIENT
  Age: 48 Year
  Sex: Female
  Weight: 42.2 kg

DRUGS (29)
  1. FLUOROURACIL [Suspect]
     Dosage: 400 MG/M2, ON DAY 1 EVERY 14 DAYS
     Route: 040
     Dates: start: 20120406
  2. FLUOROURACIL [Suspect]
     Dosage: 2400 MG/M2, CONTINUOUS IV FOR 46-48 HOURS ON DAY 1 EVERY 14 DAYS
     Route: 041
     Dates: start: 20120406
  3. OXALIPLATIN [Suspect]
     Dosage: 85 MG/M2, ON DAY 1 EVERY 14 DAYS
     Route: 042
     Dates: start: 20120406
  4. LEUCOVORIN CALCIUM [Suspect]
     Dosage: 400 MG/M2, ON DAY 1 EVERY 14 DAYS
     Route: 042
     Dates: start: 20120406
  5. BLINDED THERAPY [Suspect]
     Dosage: ON DAY 1 EVERY 14 DAYS
     Route: 042
     Dates: start: 20120406
  6. PRILOSEC [Concomitant]
     Dosage: UNK
     Dates: start: 201201
  7. SYNTHROID [Concomitant]
     Dosage: UNK
     Dates: start: 200102
  8. ZOFRAN [Concomitant]
     Dosage: UNK
     Dates: start: 20120406
  9. REGLAN [Concomitant]
     Dosage: UNK
     Dates: start: 20120419
  10. SERTRALINE [Concomitant]
     Dosage: UNK
     Dates: start: 20120505
  11. OXYCODONE [Concomitant]
     Dosage: UNK
     Dates: start: 20120426
  12. ZOLPIDEM [Concomitant]
     Dosage: UNK
     Dates: start: 20120626
  13. IMODIUM [Concomitant]
     Dosage: UNK
     Dates: start: 20120401
  14. PROCHLORPERAZINE [Concomitant]
     Dosage: UNK
     Dates: start: 20120510
  15. ALBUTEROL [Concomitant]
     Dosage: UNK
     Dates: start: 200902
  16. VITAMIN D [Concomitant]
     Dosage: UNK
     Dates: start: 201001
  17. ONDASETRON [Concomitant]
     Dosage: UNK
     Dates: start: 20120406
  18. DEXAMETHASONE [Concomitant]
     Dosage: UNK
     Dates: start: 20120406
  19. GENTAMICIN SULFATE [Concomitant]
     Dosage: UNK
     Dates: start: 20120406
  20. ATIVAN [Concomitant]
     Dosage: UNK
     Dates: start: 20120416
  21. LEVOXYL [Concomitant]
     Dosage: UNK
     Dates: start: 20120510
  22. PROCHLORPERAZINE MALEATE [Concomitant]
     Dosage: UNK
     Dates: start: 20120510
  23. NEXIUM [Concomitant]
     Dosage: UNK
     Dates: start: 201203
  24. IRON [Concomitant]
     Dosage: UNK
     Dates: start: 20120902
  25. ATARAX [Concomitant]
     Dosage: UNK
     Dates: start: 20120815
  26. VITAMIN B12 [Concomitant]
     Dosage: UNK
     Dates: start: 20120922
  27. CALCIUM [Concomitant]
     Dosage: UNK
     Dates: start: 20121213
  28. ZINC OXIDE [Concomitant]
     Dosage: UNK
     Dates: start: 20121211
  29. VITAMIN B COMPLEX [Concomitant]
     Dosage: UNK
     Dates: start: 20121213

REACTIONS (1)
  - Abdominal distension [Recovered/Resolved with Sequelae]
